FAERS Safety Report 7720760-1 (Version None)
Quarter: 2011Q3

REPORT INFORMATION
  Report Type: 
  Country: None (occurrence: None)
  Receive Date: 20110831
  Receipt Date: 20110826
  Transmission Date: 20111222
  Serious: Yes (Other)
  Sender: FDA-Public Use
  Company Number: GB-ASTELLAS-2011EU005786

PATIENT
  Age: 48 Year
  Sex: Female

DRUGS (1)
  1. SOLIFENACIN SUCCINATE [Suspect]
     Dosage: UNK
     Route: 065
     Dates: start: 20110606, end: 20110623

REACTIONS (1)
  - ERYTHEMA [None]
